FAERS Safety Report 12776780 (Version 3)
Quarter: 2016Q4

REPORT INFORMATION
  Report Type: Report from Study
  Country: AU (occurrence: AU)
  Receive Date: 20160923
  Receipt Date: 20161122
  Transmission Date: 20170207
  Serious: Yes (Hospitalization)
  Sender: FDA-Public Use
  Company Number: AU-ALEXION PHARMACEUTICALS INC.-A201607089

PATIENT
  Age: 40 Year
  Sex: Female
  Weight: 50 kg

DRUGS (11)
  1. ECULIZUMAB [Suspect]
     Active Substance: ECULIZUMAB
     Dosage: 1200 MG, Q2W
     Route: 042
     Dates: start: 20111202
  2. DARBEPOETIN ALFA [Concomitant]
     Active Substance: DARBEPOETIN ALFA
     Indication: ANAEMIA
     Dosage: UNK
     Route: 042
     Dates: start: 20150921
  3. WARFARIN [Concomitant]
     Active Substance: WARFARIN
     Indication: ANTICOAGULANT THERAPY
     Dosage: UNK
     Route: 048
     Dates: start: 20111204
  4. SEVELAMER [Concomitant]
     Active Substance: SEVELAMER
     Indication: HYPERPHOSPHATAEMIA
     Dosage: UNK
     Route: 048
     Dates: start: 20120612
  5. ECULIZUMAB [Suspect]
     Active Substance: ECULIZUMAB
     Indication: HAEMOLYTIC URAEMIC SYNDROME
     Dosage: 900 MG, QW
     Route: 042
     Dates: start: 20111104, end: 20111125
  6. STEMETIL                           /00013301/ [Concomitant]
     Active Substance: PROCHLORPERAZINE
     Indication: NAUSEA
     Dosage: UNK
     Route: 048
     Dates: start: 20150324
  7. OXAZEPAM. [Concomitant]
     Active Substance: OXAZEPAM
     Indication: PROPHYLAXIS
     Dosage: UNK
     Route: 048
     Dates: start: 20141118
  8. CARVEDILOL. [Concomitant]
     Active Substance: CARVEDILOL
     Indication: HYPERTENSION
     Dosage: 25 MG, BID
     Route: 048
     Dates: start: 20121213
  9. CLONAZEPAM. [Concomitant]
     Active Substance: CLONAZEPAM
     Indication: PROPHYLAXIS
     Dosage: UNK
     Route: 048
     Dates: start: 20140902
  10. DULOXETINE. [Concomitant]
     Active Substance: DULOXETINE
     Indication: ROUTINE HEALTH MAINTENANCE
     Dosage: UNK
     Route: 048
     Dates: start: 20150122
  11. IRON POLYMALTOSE COMPLEX [Concomitant]
     Indication: ROUTINE HEALTH MAINTENANCE
     Dosage: UNK
     Route: 042
     Dates: start: 20150908

REACTIONS (2)
  - Endocarditis [Not Recovered/Not Resolved]
  - Renal impairment [Not Recovered/Not Resolved]

NARRATIVE: CASE EVENT DATE: 20160909
